FAERS Safety Report 8394996-3 (Version None)
Quarter: 2012Q2

REPORT INFORMATION
  Report Type: 
  Country: None (occurrence: None)
  Receive Date: 20120530
  Receipt Date: 20120516
  Transmission Date: 20120825
  Serious: Yes (Hospitalization)
  Sender: FDA-Public Use
  Company Number: CH-ELI_LILLY_AND_COMPANY-CH201205005886

PATIENT
  Age: 76 Year
  Sex: Male

DRUGS (6)
  1. ZYPREXA [Suspect]
     Indication: HALLUCINATION, VISUAL
     Dosage: 1.25 MG, QD
     Route: 048
     Dates: start: 20120215, end: 20120221
  2. TORSEMIDE [Concomitant]
     Dosage: 5 MG, QD
     Route: 048
     Dates: start: 20090101
  3. MARCOUMAR [Concomitant]
     Dosage: UNK
     Dates: start: 20070101
  4. ZYPREXA [Suspect]
     Dosage: 2.5 MG, QD
     Route: 048
     Dates: start: 20120222, end: 20120226
  5. METOPROLOL TARTRATE AND HYDROCHLOROTHIAZIDE [Concomitant]
     Dosage: 50 MG, QD
     Route: 048
     Dates: start: 20080101
  6. IRBESARTAN [Concomitant]
     Indication: HYPERTENSION
     Dosage: 150 MG, QD
     Route: 048
     Dates: start: 20090101

REACTIONS (5)
  - POSITRON EMISSION TOMOGRAM ABNORMAL [None]
  - RESTLESSNESS [None]
  - DELIRIUM [None]
  - HALLUCINATION [None]
  - AGGRESSION [None]
